FAERS Safety Report 5634950-5 (Version None)
Quarter: 2008Q1

REPORT INFORMATION
  Report Type: 
  Country: None (occurrence: None)
  Receive Date: 20080222
  Receipt Date: 20080218
  Transmission Date: 20080703
  Serious: No
  Sender: FDA-Public Use
  Company Number: FR-BRISTOL-MYERS SQUIBB COMPANY-14037774

PATIENT
  Age: 57 Year
  Sex: Female
  Weight: 46 kg

DRUGS (3)
  1. REYATAZ [Suspect]
     Route: 048
     Dates: start: 20051010
  2. NORVIR [Concomitant]
     Dates: start: 20051010
  3. TRUVADA [Concomitant]
     Dates: start: 20060419

REACTIONS (1)
  - NEPHROLITHIASIS [None]
